FAERS Safety Report 21663306 (Version 1)
Quarter: 2022Q4

REPORT INFORMATION
  Report Type: Spontaneous
  Country: US (occurrence: None)
  Receive Date: 20221129
  Receipt Date: 20221129
  Transmission Date: 20230113
  Serious: No
  Sender: FDA-Public Use
  Company Number: None

PATIENT
  Age: 34 Year
  Sex: Male

DRUGS (1)
  1. HUMIRA [Suspect]
     Active Substance: ADALIMUMAB
     Indication: Uveitis
     Dosage: OTHER FREQUENCY : EVERY 2 WEEKS;?
     Route: 058
     Dates: start: 202105

REACTIONS (2)
  - Herpes zoster [None]
  - Therapy interrupted [None]
